FAERS Safety Report 17210405 (Version 1)
Quarter: 2019Q4

REPORT INFORMATION
  Report Type: Spontaneous
  Country: US (occurrence: US)
  Receive Date: 20191227
  Receipt Date: 20191227
  Transmission Date: 20200122
  Serious: Yes (Other)
  Sender: FDA-Public Use
  Company Number: US-ELI_LILLY_AND_COMPANY-US201912011247

PATIENT
  Sex: Female

DRUGS (1)
  1. EMGALITY [Suspect]
     Active Substance: GALCANEZUMAB-GNLM
     Indication: PRODUCT USED FOR UNKNOWN INDICATION
     Dosage: UNK, UNKNOWN
     Route: 065

REACTIONS (12)
  - Cataract [Unknown]
  - Pain [Unknown]
  - Malaise [Unknown]
  - Emotional disorder [Unknown]
  - Vomiting [Unknown]
  - Insomnia [Unknown]
  - Photophobia [Unknown]
  - Hypoacusis [Unknown]
  - General physical health deterioration [Unknown]
  - Visual impairment [Unknown]
  - Renal disorder [Unknown]
  - Blood pressure abnormal [Unknown]
